FAERS Safety Report 12055969 (Version 2)
Quarter: 2016Q1

REPORT INFORMATION
  Report Type: Spontaneous
  Country: FR (occurrence: FR)
  Receive Date: 20160210
  Receipt Date: 20160308
  Transmission Date: 20160526
  Serious: Yes (Hospitalization, Other)
  Sender: FDA-Public Use
  Company Number: FR-ROCHE-1708488

PATIENT
  Age: 15 Year
  Sex: Female

DRUGS (1)
  1. XOLAIR [Suspect]
     Active Substance: OMALIZUMAB
     Indication: ASTHMA
     Route: 065
     Dates: start: 2012

REACTIONS (4)
  - Antinuclear antibody positive [Not Recovered/Not Resolved]
  - DNA antibody positive [Not Recovered/Not Resolved]
  - Malaise [Unknown]
  - Asthma [Unknown]
